FAERS Safety Report 14559096 (Version 1)
Quarter: 2018Q1

REPORT INFORMATION
  Report Type: Spontaneous
  Country: ES (occurrence: ES)
  Receive Date: 20180221
  Receipt Date: 20180221
  Transmission Date: 20180509
  Serious: Yes (Life-Threatening, Hospitalization)
  Sender: FDA-Public Use
  Company Number: ES-TEVA-2018-ES-857758

PATIENT
  Age: 70 Year
  Sex: Female

DRUGS (3)
  1. LETROZOLE. [Suspect]
     Active Substance: LETROZOLE
     Dosage: 1 TABLET PER DAY
     Route: 048
     Dates: start: 20140801
  2. IRBESARTAN +HCLZ [Concomitant]
     Indication: HYPERTENSION
     Dosage: 1-0-0
     Route: 048
     Dates: start: 20130101, end: 20170321
  3. SIMVASTATINA 10 [Concomitant]
     Indication: DYSLIPIDAEMIA
     Dosage: 0-0-1
     Route: 048
     Dates: start: 20130101

REACTIONS (1)
  - Acute myeloid leukaemia [Not Recovered/Not Resolved]

NARRATIVE: CASE EVENT DATE: 20170321
